FAERS Safety Report 9029938 (Version 2)
Quarter: 2013Q2

REPORT INFORMATION
  Report Type: Report from Study
  Country: NL (occurrence: NL)
  Receive Date: 20130125
  Receipt Date: 20130404
  Transmission Date: 20140414
  Serious: Yes (Hospitalization)
  Sender: FDA-Public Use
  Company Number: NL-BIOGENIDEC-2013BI005894

PATIENT
  Age: 40 Year
  Sex: Female
  Weight: 78 kg

DRUGS (3)
  1. TYSABRI [Suspect]
     Indication: RELAPSING-REMITTING MULTIPLE SCLEROSIS
     Route: 042
     Dates: start: 20091112, end: 20121113
  2. FEMODEEN ORAL PRESERVATIVE [Concomitant]
  3. FOLIC ACID [Concomitant]

REACTIONS (2)
  - Epiglottitis [Recovered/Resolved]
  - Lymphadenitis [Recovered/Resolved]
